FAERS Safety Report 5209018-2 (Version None)
Quarter: 2007Q1

REPORT INFORMATION
  Report Type: 
  Country: None (occurrence: None)
  Receive Date: 20070116
  Receipt Date: 20061228
  Transmission Date: 20070707
  Serious: Yes (Other)
  Sender: FDA-Public Use
  Company Number: IT-MERCK-0611USA01165

PATIENT
  Age: 62 Year
  Sex: Male

DRUGS (2)
  1. PRINIVIL [Suspect]
     Route: 048
     Dates: start: 19900101
  2. PRINZIDE [Suspect]
     Route: 048
     Dates: start: 19900101

REACTIONS (1)
  - PANCREATITIS CHRONIC [None]
